FAERS Safety Report 16105398 (Version 1)
Quarter: 2019Q1

REPORT INFORMATION
  Report Type: Spontaneous
  Country: US (occurrence: US)
  Receive Date: 20190219
  Receipt Date: 20190219
  Transmission Date: 20190418
  Serious: No
  Sender: FDA-Public Use
  Company Number: None

PATIENT
  Age: 70 Year
  Sex: Male

DRUGS (1)
  1. LATANOPROST. [Suspect]
     Active Substance: LATANOPROST
     Route: 047
     Dates: start: 20050405, end: 20190205

REACTIONS (1)
  - Ocular hyperaemia [None]

NARRATIVE: CASE EVENT DATE: 20190205
